FAERS Safety Report 12242475 (Version 1)
Quarter: 2016Q2

REPORT INFORMATION
  Report Type: Spontaneous
  Country: US (occurrence: None)
  Receive Date: 20160405
  Receipt Date: 20160405
  Transmission Date: 20160815
  Serious: Yes (Life-Threatening, Hospitalization, Disabling)
  Sender: FDA-Public Use
  Company Number: None

PATIENT
  Age: 65 Year
  Sex: Female
  Weight: 58.97 kg

DRUGS (11)
  1. CALCIUM [Concomitant]
     Active Substance: CALCIUM
  2. D-3 [Concomitant]
     Active Substance: CHOLECALCIFEROL
  3. GENERIC FORM OF PAXIL [Suspect]
     Active Substance: PAROXETINE HYDROCHLORIDE
     Indication: SOCIAL ANXIETY DISORDER
     Dosage: 1 PILL ONCE A DAY, MOUTH
     Route: 048
     Dates: start: 1990, end: 201512
  4. LEXAPRO [Concomitant]
     Active Substance: ESCITALOPRAM OXALATE
  5. TRAZODONE [Concomitant]
     Active Substance: TRAZODONE HYDROCHLORIDE
  6. COENZYME Q10 [Concomitant]
     Active Substance: UBIDECARENONE
  7. C [Concomitant]
  8. MAGNESIUM [Concomitant]
     Active Substance: MAGNESIUM
  9. GENERIC FORM OF PAXIL [Suspect]
     Active Substance: PAROXETINE HYDROCHLORIDE
     Indication: DEPRESSION
     Dosage: 1 PILL ONCE A DAY, MOUTH
     Route: 048
     Dates: start: 1990, end: 201512
  10. MUSHROOM [Concomitant]
     Active Substance: CULTIVATED MUSHROOM
  11. TURMERIC [Concomitant]
     Active Substance: TURMERIC

REACTIONS (2)
  - Mammogram abnormal [None]
  - Breast cancer female [None]

NARRATIVE: CASE EVENT DATE: 201508
